FAERS Safety Report 25768905 (Version 1)
Quarter: 2025Q3

REPORT INFORMATION
  Report Type: Spontaneous
  Country: AU (occurrence: AU)
  Receive Date: 20250905
  Receipt Date: 20250905
  Transmission Date: 20251020
  Serious: Yes (Hospitalization, Other)
  Sender: VERTEX
  Company Number: AU-VERTEX PHARMACEUTICALS-2025-014539

PATIENT
  Age: 11 Year
  Sex: Male
  Weight: 36 kg

DRUGS (5)
  1. TRIKAFTA [Suspect]
     Active Substance: ELEXACAFTOR\IVACAFTOR\TEZACAFTOR
     Indication: Cystic fibrosis
     Route: 048
  2. ORKAMBI [Suspect]
     Active Substance: IVACAFTOR\LUMACAFTOR
     Indication: Cystic fibrosis
     Route: 048
  3. TACROLIMUS [Concomitant]
     Active Substance: TACROLIMUS
  4. Hypertonic [Concomitant]
     Route: 055
  5. TOBRAMYCIN [Concomitant]
     Active Substance: TOBRAMYCIN
     Route: 055

REACTIONS (8)
  - Hospitalisation [Unknown]
  - Liver transplant [Unknown]
  - Food intolerance [Not Recovered/Not Resolved]
  - Pulmonary function test decreased [Not Recovered/Not Resolved]
  - Pseudomonas infection [Not Recovered/Not Resolved]
  - Impaired gastric emptying [Not Recovered/Not Resolved]
  - Vomiting [Not Recovered/Not Resolved]
  - Sputum increased [Unknown]

NARRATIVE: CASE EVENT DATE: 20190101
